FAERS Safety Report 9396855 (Version 1)
Quarter: 2013Q3

REPORT INFORMATION
  Report Type: Spontaneous
  Country: SE (occurrence: SE)
  Receive Date: 20130712
  Receipt Date: 20130712
  Transmission Date: 20140515
  Serious: Yes (Hospitalization, Other)
  Sender: FDA-Public Use
  Company Number: SE-009507513-1307SWE002732

PATIENT
  Age: 65 Year
  Sex: Female

DRUGS (3)
  1. MIRTAZAPIN IMI PHARMA [Suspect]
     Indication: ESSENTIAL HYPERTENSION
     Dosage: 15 MG, QD
     Route: 048
     Dates: start: 20130402, end: 20130410
  2. ENALAPRIL MALEATE [Suspect]
     Indication: ESSENTIAL HYPERTENSION
     Dosage: 20 MG, QD
     Route: 048
     Dates: start: 20100421, end: 20130410
  3. METFORMIN [Concomitant]

REACTIONS (4)
  - Depressed level of consciousness [Unknown]
  - Hypokalaemia [Unknown]
  - Hyponatraemia [Unknown]
  - Convulsion [Unknown]
